FAERS Safety Report 9240331 (Version 1)
Quarter: 2013Q1

REPORT INFORMATION
  Report Type: Spontaneous
  Country: US (occurrence: None)
  Receive Date: 20121120
  Receipt Date: 20121120
  Transmission Date: 20140127
  Serious: Yes (Death)
  Sender: FDA-Public Use
  Company Number: 1000038383

PATIENT
  Age: 41 Year
  Sex: Male

DRUGS (5)
  1. VIIBRYD (VILAZODONE) (TABLETS) [Suspect]
     Indication: MAJOR DEPRESSION
     Dosage: 10 MG
     Route: 048
     Dates: start: 201201
  2. WELLBUTRIN XL [Concomitant]
  3. ULTRAM (TRAMADOL HYDROCHLORIDE) (TRAMADOL HYDROCHLORIDE) [Concomitant]
  4. PROPECIA (FINASTERIDE) (FINASTERIDE) [Concomitant]
  5. ACYCLOVIR (ACYCLOVIR) (ACYCLOVIR) [Concomitant]

REACTIONS (1)
  - Death [None]
